FAERS Safety Report 9511628 (Version 1)
Quarter: 2013Q3

REPORT INFORMATION
  Report Type: Spontaneous
  Country: BD (occurrence: BD)
  Receive Date: 20130910
  Receipt Date: 20130910
  Transmission Date: 20140515
  Serious: Yes (Other)
  Sender: FDA-Public Use
  Company Number: PHHY2013BD099016

PATIENT
  Age: 40 Year
  Sex: Female
  Weight: 56 kg

DRUGS (1)
  1. ASUNRA [Suspect]
     Indication: THALASSAEMIA
     Dosage: 600 MG, DAILY
     Route: 048
     Dates: start: 20130820

REACTIONS (4)
  - Pain [Unknown]
  - Movement disorder [Unknown]
  - Hypophagia [Unknown]
  - Gastrointestinal disorder [Unknown]
